FAERS Safety Report 13143168 (Version 2)
Quarter: 2017Q1

REPORT INFORMATION
  Report Type: Spontaneous
  Country: US (occurrence: US)
  Receive Date: 20170123
  Receipt Date: 20170207
  Transmission Date: 20170428
  Serious: Yes (Other)
  Sender: FDA-Public Use
  Company Number: US-BEH-2017077427

PATIENT
  Age: 73 Year
  Sex: Female
  Weight: 68.48 kg

DRUGS (16)
  1. LIDOCAINE/PRILOCAINE [Concomitant]
     Active Substance: LIDOCAINE\PRILOCAINE
  2. EPIPEN [Concomitant]
     Active Substance: EPINEPHRINE
  3. FAMOTIDINE. [Concomitant]
     Active Substance: FAMOTIDINE
  4. ALVESCO [Concomitant]
     Active Substance: CICLESONIDE
  5. MONTELUKAST [Concomitant]
     Active Substance: MONTELUKAST SODIUM
  6. HIZENTRA [Suspect]
     Active Substance: HUMAN IMMUNOGLOBULIN G
     Dosage: UNK
     Route: 058
  7. SIMVASTATIN. [Concomitant]
     Active Substance: SIMVASTATIN
  8. PANTOPRAZOLE [Concomitant]
     Active Substance: PANTOPRAZOLE SODIUM
  9. AMLODIPINE [Concomitant]
     Active Substance: AMLODIPINE BESYLATE
  10. PATANASE [Concomitant]
     Active Substance: OLOPATADINE HYDROCHLORIDE
  11. HIZENTRA [Suspect]
     Active Substance: HUMAN IMMUNOGLOBULIN G
     Dosage: UNK
     Route: 058
  12. FLORASTOR [Concomitant]
     Active Substance: SACCHAROMYCES CEREVISIAE
  13. SUCRALFATE. [Concomitant]
     Active Substance: SUCRALFATE
  14. LOSARTAN. [Concomitant]
     Active Substance: LOSARTAN
  15. HIZENTRA [Suspect]
     Active Substance: HUMAN IMMUNOGLOBULIN G
     Indication: IMMUNODEFICIENCY COMMON VARIABLE
     Dosage: 9 G, UNK
     Route: 058
     Dates: start: 20101216
  16. OMNARIS [Concomitant]
     Active Substance: CICLESONIDE

REACTIONS (4)
  - Postoperative wound infection [Recovered/Resolved]
  - Skin neoplasm excision [Unknown]
  - Nasopharyngitis [Unknown]
  - Basal cell carcinoma [Unknown]

NARRATIVE: CASE EVENT DATE: 201610
